FAERS Safety Report 16360806 (Version 1)
Quarter: 2019Q2

REPORT INFORMATION
  Report Type: Spontaneous
  Country: US (occurrence: US)
  Receive Date: 20190419
  Receipt Date: 20190419
  Transmission Date: 20190711
  Serious: Yes (Hospitalization)
  Sender: FDA-Public Use
  Company Number: None

PATIENT
  Age: 62 Year
  Sex: Male

DRUGS (32)
  1. IRON [Concomitant]
     Active Substance: IRON
  2. PREDNISONE. [Concomitant]
     Active Substance: PREDNISONE
  3. CALCIUM 600 [Concomitant]
     Active Substance: CALCIUM
  4. BUDESONIDE. [Concomitant]
     Active Substance: BUDESONIDE
  5. STELARA [Suspect]
     Active Substance: USTEKINUMAB
     Indication: CROHN^S DISEASE
     Route: 058
     Dates: start: 20190410
  6. LITHIUM CARB [Concomitant]
     Active Substance: LITHIUM CARBONATE
  7. LOMOTIL [Concomitant]
     Active Substance: ATROPINE SULFATE\DIPHENOXYLATE HYDROCHLORIDE
  8. FLUTICASONE. [Concomitant]
     Active Substance: FLUTICASONE
  9. SINGULAIR [Concomitant]
     Active Substance: MONTELUKAST SODIUM
  10. EPINEPHRINE. [Concomitant]
     Active Substance: EPINEPHRINE
  11. METOPROLOL TARTRATE. [Concomitant]
     Active Substance: METOPROLOL TARTRATE
  12. MONTELUKAST [Concomitant]
     Active Substance: MONTELUKAST SODIUM
  13. LEVOCETIRIZI [Concomitant]
  14. IPRATROPIUM/SOL ALBUTER [Concomitant]
  15. ATORVASTATIN [Concomitant]
     Active Substance: ATORVASTATIN
  16. LYRICA [Concomitant]
     Active Substance: PREGABALIN
  17. VITAMIN D3 [Concomitant]
     Active Substance: CHOLECALCIFEROL
  18. VIT B [Concomitant]
     Active Substance: VITAMIN B
  19. QUETIAPINE. [Concomitant]
     Active Substance: QUETIAPINE
  20. IPRATROPIUM SPR [Concomitant]
  21. HALOBETASOL CRE [Concomitant]
  22. MULTI VIT [Concomitant]
     Active Substance: VITAMINS
  23. PROAIR HFA [Concomitant]
     Active Substance: ALBUTEROL SULFATE
  24. LISINOPRIL. [Concomitant]
     Active Substance: LISINOPRIL
  25. PROBIOTIC [Concomitant]
     Active Substance: PROBIOTICS NOS
  26. CLOPIDOGREL [Concomitant]
     Active Substance: CLOPIDOGREL BISULFATE
  27. PROMETHAZINE [Concomitant]
     Active Substance: PROMETHAZINE\PROMETHAZINE HYDROCHLORIDE
  28. OMEPRAZOLE. [Concomitant]
     Active Substance: OMEPRAZOLE
  29. ADVAIR HFA [Concomitant]
     Active Substance: FLUTICASONE PROPIONATE\SALMETEROL XINAFOATE
  30. LEVOCETIRIZI [Concomitant]
  31. LIDOCAINE. [Concomitant]
     Active Substance: LIDOCAINE
  32. ELIQUIS [Concomitant]
     Active Substance: APIXABAN

REACTIONS (1)
  - Hospitalisation [None]

NARRATIVE: CASE EVENT DATE: 201904
